FAERS Safety Report 4964824-4 (Version None)
Quarter: 2006Q2

REPORT INFORMATION
  Report Type: 
  Country: None (occurrence: None)
  Receive Date: 20060403
  Receipt Date: 20060323
  Transmission Date: 20061013
  Serious: Yes (Hospitalization)
  Sender: FDA-Public Use
  Company Number: HQWYE493223MAR06

PATIENT
  Age: 66 Year
  Sex: Male

DRUGS (5)
  1. PANTOPRAZOLE SODIUM [Suspect]
     Dosage: ^DF^ ORAL
     Route: 048
  2. PRAVASTATIN [Suspect]
     Dosage: ^DF^ ORAL
     Route: 048
  3. CARVEDILOL [Suspect]
     Dosage: ^DF^ ORAL
     Route: 048
  4. PLAVIX [Suspect]
     Dosage: ^75 MG^ ORAL
     Route: 048
  5. RAMIPRIL [Suspect]
     Dosage: 6.25 MG 1X PER 1 DAY ORAL
     Route: 048
     Dates: start: 20050701, end: 20050828

REACTIONS (7)
  - ANAEMIA [None]
  - CORONARY ARTERY STENOSIS [None]
  - DUODENITIS HAEMORRHAGIC [None]
  - GASTRITIS EROSIVE [None]
  - PNEUMONIA [None]
  - RENAL FAILURE ACUTE [None]
  - SEPTIC SHOCK [None]
